FAERS Safety Report 7540368-0 (Version None)
Quarter: 2011Q2

REPORT INFORMATION
  Report Type: 
  Country: None (occurrence: None)
  Receive Date: 20110610
  Receipt Date: 20110601
  Transmission Date: 20111010
  Serious: Yes (Hospitalization, Other)
  Sender: FDA-Public Use
  Company Number: US-CEPHALON-2011002636

PATIENT
  Sex: Female

DRUGS (2)
  1. NUVIGIL [Suspect]
     Indication: NARCOLEPSY
     Route: 048
     Dates: start: 20110301, end: 20110501
  2. LEVOTHYROXINE SODIUM [Concomitant]
     Indication: HYPOTHYROIDISM

REACTIONS (12)
  - SKIN EXFOLIATION [None]
  - INFECTION [None]
  - RASH [None]
  - OESOPHAGEAL PAIN [None]
  - WOUND [None]
  - HEADACHE [None]
  - CONSTIPATION [None]
  - ABDOMINAL PAIN [None]
  - CELLULITIS [None]
  - EYE PRURITUS [None]
  - OESOPHAGEAL ULCER [None]
  - APHAGIA [None]
